FAERS Safety Report 13082677 (Version 1)
Quarter: 2017Q1

REPORT INFORMATION
  Report Type: Spontaneous
  Country: TW (occurrence: TW)
  Receive Date: 20170103
  Receipt Date: 20170103
  Transmission Date: 20170428
  Serious: Yes (Other)
  Sender: FDA-Public Use
  Company Number: TW-ABBVIE-16P-153-1824162-00

PATIENT
  Age: 42 Year
  Sex: Male

DRUGS (7)
  1. VALPROIC ACID. [Suspect]
     Active Substance: VALPROIC ACID
     Indication: CHILDHOOD PSYCHOSIS
     Dosage: AT BEDTIME
     Route: 048
     Dates: start: 20131104
  2. CLOMIPRAMINE [Interacting]
     Active Substance: CLOMIPRAMINE
     Indication: CHILDHOOD PSYCHOSIS
     Dosage: AT BEDTIME
     Route: 065
     Dates: start: 20131104
  3. BROTIZOLAM [Concomitant]
     Active Substance: BROTIZOLAM
     Indication: PRODUCT USED FOR UNKNOWN INDICATION
     Dates: start: 20131104
  4. CLOZAPINE. [Interacting]
     Active Substance: CLOZAPINE
     Indication: CHILDHOOD PSYCHOSIS
     Dosage: AT BEDTIME
     Route: 065
     Dates: start: 20131104
  5. CLOZAPINE. [Interacting]
     Active Substance: CLOZAPINE
     Route: 048
     Dates: start: 20140403
  6. HALOPERIDOL. [Interacting]
     Active Substance: HALOPERIDOL
     Indication: CHILDHOOD PSYCHOSIS
     Dosage: AT BEDTIME
     Route: 065
     Dates: start: 20140401, end: 20140403
  7. TRIHEXYPHENIDYL [Concomitant]
     Active Substance: TRIHEXYPHENIDYL
     Indication: PRODUCT USED FOR UNKNOWN INDICATION
     Dates: start: 20131104

REACTIONS (7)
  - White blood cell count increased [Unknown]
  - Haemoglobin decreased [Unknown]
  - Pneumonia [Unknown]
  - C-reactive protein increased [Unknown]
  - Blood pressure decreased [Unknown]
  - Drug interaction [Unknown]
  - Blood creatine phosphokinase increased [Unknown]

NARRATIVE: CASE EVENT DATE: 20140423
